FAERS Safety Report 13405357 (Version 3)
Quarter: 2017Q3

REPORT INFORMATION
  Report Type: Spontaneous
  Country: US (occurrence: US)
  Receive Date: 20170405
  Receipt Date: 20170818
  Transmission Date: 20171127
  Serious: Yes (Hospitalization, Other)
  Sender: FDA-Public Use
  Company Number: US-AMGEN-USASP2017049800

PATIENT
  Age: 50 Year
  Sex: Female
  Weight: 117 kg

DRUGS (36)
  1. TYLENOL [Concomitant]
     Active Substance: ACETAMINOPHEN
     Indication: HEADACHE
     Dosage: 325 MG, UNK
     Dates: start: 20170113
  2. PANTOPRAZOLE [Concomitant]
     Active Substance: PANTOPRAZOLE
     Dosage: UNK
     Dates: start: 20170121, end: 20170213
  3. SIMETHICONE (DIMETHICONE) [Concomitant]
     Active Substance: DIMETHICONE
     Dosage: UNK
     Dates: start: 20170210, end: 20170211
  4. FLUDARABINE [Suspect]
     Active Substance: FLUDARABINE PHOSPHATE
     Indication: ACUTE MYELOID LEUKAEMIA
     Dosage: 67.5 MG, QD
     Route: 042
     Dates: start: 20170121, end: 20170125
  5. CYTARABINE. [Suspect]
     Active Substance: CYTARABINE
     Dosage: 2240 MG, QD
     Route: 042
     Dates: start: 20170122, end: 20170125
  6. ZOVIRAX [Concomitant]
     Active Substance: ACYCLOVIR
     Dosage: 200 MG, UNK
     Dates: start: 20170120
  7. DEXAMETHASONE. [Concomitant]
     Active Substance: DEXAMETHASONE
     Dosage: UNK
     Dates: start: 20170121, end: 20170128
  8. OXYCODONE [Concomitant]
     Active Substance: OXYCODONE
     Dosage: 4 MG, UNK
     Dates: start: 20170119
  9. IDARUBICIN [Suspect]
     Active Substance: IDARUBICIN
     Indication: ACUTE MYELOID LEUKAEMIA
     Dosage: 18 MG, QD
     Route: 042
     Dates: start: 20170122, end: 20170124
  10. DEXAMETHASONE. [Concomitant]
     Active Substance: DEXAMETHASONE
     Dosage: UNK
     Dates: start: 20170122, end: 20170127
  11. IPRATROPIUM [Concomitant]
     Active Substance: IPRATROPIUM
     Dosage: UNK
     Dates: start: 20170124, end: 20170213
  12. IRON [Concomitant]
     Active Substance: IRON
     Dosage: 325 MG, UNK
     Dates: start: 20170213
  13. CEFEPIME [Concomitant]
     Active Substance: CEFEPIME HYDROCHLORIDE
     Indication: BACTERIAL TEST POSITIVE
     Dosage: UNK
     Route: 042
     Dates: start: 20170224
  14. FILGRASTIM [Suspect]
     Active Substance: FILGRASTIM
     Dosage: UNK
     Route: 065
     Dates: start: 20170403
  15. ALLOPURINOL. [Concomitant]
     Active Substance: ALLOPURINOL
     Dosage: UNK
     Dates: start: 20170113, end: 20170213
  16. CYTARABINE. [Suspect]
     Active Substance: CYTARABINE
     Indication: ACUTE MYELOID LEUKAEMIA
     Dosage: 4460 MG, QD
     Route: 042
     Dates: start: 20170121, end: 20170121
  17. NOXAFIL [Concomitant]
     Active Substance: POSACONAZOLE
     Dosage: 100 MG, UNK
     Dates: start: 20170125
  18. POTASSIUM CHLORIDE. [Concomitant]
     Active Substance: POTASSIUM CHLORIDE
     Dosage: UNK
     Dates: start: 20170204, end: 20170208
  19. VITAMIN D3 [Concomitant]
     Active Substance: CHOLECALCIFEROL
     Dosage: 1000 IU, UNK
     Dates: start: 20170213
  20. INSULIN [Concomitant]
     Active Substance: INSULIN NOS
     Dosage: UNK
     Dates: start: 20170122, end: 20170213
  21. ZOFRAN [Concomitant]
     Active Substance: ONDANSETRON HYDROCHLORIDE
     Dosage: UNK (ADMINISTERED 30 MINUTES PRIOR TO MIDOSTAURIN DOSES)
  22. ARTIFICIAL TEARS [Concomitant]
     Active Substance: GLYCERIN\HYPROMELLOSES\POLYETHYLENE GLYCOL 400
     Dosage: UNK
     Dates: start: 20170216
  23. CEFEPIME [Concomitant]
     Active Substance: CEFEPIME HYDROCHLORIDE
     Indication: FEBRILE NEUTROPENIA
     Dosage: UNK
     Route: 042
     Dates: start: 20170120, end: 20170209
  24. VANCOMYCIN [Concomitant]
     Active Substance: VANCOMYCIN
     Indication: FEBRILE NEUTROPENIA
     Dosage: UNK
     Route: 042
     Dates: start: 20170201, end: 20170205
  25. FILGRASTIM [Suspect]
     Active Substance: FILGRASTIM
     Indication: PROPHYLAXIS
     Dosage: 600 MG, QD
     Route: 058
     Dates: start: 20170120, end: 20170211
  26. CYTARABINE. [Suspect]
     Active Substance: CYTARABINE
     Dosage: 4340 MG, QD
     Route: 042
     Dates: start: 20170304, end: 20170308
  27. DIPHENHYDRAMIN [Concomitant]
     Active Substance: DIPHENHYDRAMINE
     Dosage: UNK
     Dates: start: 20170121
  28. LEVOFLOXACIN. [Concomitant]
     Active Substance: LEVOFLOXACIN
     Dosage: UNK
     Dates: start: 20170127, end: 20170131
  29. FIORICET [Concomitant]
     Active Substance: ACETAMINOPHEN\BUTALBITAL\CAFFEINE
     Dosage: UNK
     Dates: start: 20170207, end: 20170211
  30. CEFEPIME [Concomitant]
     Active Substance: CEFEPIME HYDROCHLORIDE
     Indication: PNEUMONIA
  31. VANCOMYCIN [Concomitant]
     Active Substance: VANCOMYCIN
     Dosage: 125 MG, Q12H
     Route: 048
     Dates: start: 20170603, end: 20170606
  32. FOLVITE [Concomitant]
     Active Substance: FOLIC ACID
     Dosage: 1 MG, UNK
     Dates: start: 20170213
  33. ATOVAQUONE. [Concomitant]
     Active Substance: ATOVAQUONE
     Dosage: UNK
  34. MIDOSTAURIN [Concomitant]
     Active Substance: MIDOSTAURIN
     Dosage: UNK (AFTER MEAL)
     Dates: start: 20170516
  35. VANCOMYCIN [Concomitant]
     Active Substance: VANCOMYCIN
     Indication: PNEUMONIA
     Dosage: UNK
     Route: 042
     Dates: start: 20170224
  36. VANCOMYCIN [Concomitant]
     Active Substance: VANCOMYCIN
     Dosage: 1 G, Q12H
     Dates: start: 20170602, end: 20170603

REACTIONS (33)
  - Uterine leiomyoma [Unknown]
  - Vascular pain [Unknown]
  - Enterococcal infection [Unknown]
  - Pneumonia [Unknown]
  - Staphylococcal infection [Unknown]
  - Clostridium difficile infection [Unknown]
  - Uterine necrosis [Unknown]
  - Pericardial effusion [Unknown]
  - Colitis [Unknown]
  - Headache [Unknown]
  - Subdural haematoma [Recovered/Resolved with Sequelae]
  - Ascites [Unknown]
  - Bacterial test positive [Unknown]
  - Supraventricular tachycardia [Unknown]
  - Febrile neutropenia [Unknown]
  - Purulent discharge [Unknown]
  - Eschar [Unknown]
  - Proctitis [Unknown]
  - Anal fistula [Unknown]
  - Soft tissue haemorrhage [Unknown]
  - Haemorrhoids [Unknown]
  - Dizziness [Unknown]
  - Haemoglobin decreased [Unknown]
  - Thrombocytopenia [Unknown]
  - Facial paralysis [Unknown]
  - Mitral valve incompetence [Unknown]
  - Oedema peripheral [Unknown]
  - Sepsis [Unknown]
  - Subdural haemorrhage [Recovered/Resolved with Sequelae]
  - Lip ulceration [Unknown]
  - Localised oedema [Unknown]
  - Tricuspid valve incompetence [Unknown]
  - Impaired healing [Unknown]

NARRATIVE: CASE EVENT DATE: 2017
